FAERS Safety Report 4503361-8 (Version None)
Quarter: 2004Q4

REPORT INFORMATION
  Report Type: 
  Country: None (occurrence: None)
  Receive Date: 20041112
  Receipt Date: 20041027
  Transmission Date: 20050328
  Serious: Yes (Death, Hospitalization)
  Sender: FDA-Public Use
  Company Number: 2004-0007492

PATIENT
  Age: 32 Year
  Sex: Female
  Weight: 50 kg

DRUGS (6)
  1. EMTRICITABINE (EMTRICITABINE) [Suspect]
     Indication: HIV INFECTION
     Dosage: 200 MG, 1 IN 1 D
     Dates: start: 20040823, end: 20041021
  2. TENOFOVIR DISOPROXIL FUMARATE (TENOFOVIR DISOPROXIL FUMARATE) [Suspect]
     Indication: HIV INFECTION
     Dosage: 300 MG, 1 IN 1 D
     Dates: start: 20040823, end: 20041021
  3. STOCRIN (EFAVIRENZ) [Suspect]
     Indication: HIV INFECTION
     Dates: start: 20040823, end: 20041021
  4. BACTRIM [Concomitant]
  5. FER (IRON) [Concomitant]
  6. DIFLUCAN [Concomitant]

REACTIONS (17)
  - ALANINE AMINOTRANSFERASE INCREASED [None]
  - ANAEMIA [None]
  - ASPARTATE AMINOTRANSFERASE INCREASED [None]
  - ASTHENIA [None]
  - BLOOD ALKALINE PHOSPHATASE INCREASED [None]
  - BLOOD BILIRUBIN INCREASED [None]
  - BLOOD GLUCOSE DECREASED [None]
  - CACHEXIA [None]
  - CEREBRAL TOXOPLASMOSIS [None]
  - DIARRHOEA [None]
  - HEMIPARESIS [None]
  - LUNG INFECTION [None]
  - MALNUTRITION [None]
  - OPHTHALMOPLEGIA [None]
  - PROTEIN TOTAL DECREASED [None]
  - PYREXIA [None]
  - WEIGHT DECREASED [None]
